FAERS Safety Report 16543365 (Version 4)
Quarter: 2020Q3

REPORT INFORMATION
  Report Type: Spontaneous
  Country: US (occurrence: US)
  Receive Date: 20190709
  Receipt Date: 20200717
  Transmission Date: 20201102
  Serious: Yes (Other)
  Sender: FDA-Public Use
  Company Number: US-SA-2019SA183181

PATIENT

DRUGS (1)
  1. ALPROLIX [Suspect]
     Active Substance: EFTRENONACOG ALFA
     Dosage: 6000 IU, UNK
     Route: 042

REACTIONS (5)
  - Haemarthrosis [Recovered/Resolved]
  - Spontaneous haemorrhage [Recovered/Resolved]
  - Limb injury [Recovered/Resolved]
  - Haemorrhage [Recovered/Resolved]
  - Penis injury [Recovered/Resolved]

NARRATIVE: CASE EVENT DATE: 20190625
